FAERS Safety Report 9311912 (Version 3)
Quarter: 2013Q2

REPORT INFORMATION
  Report Type: Report from Study
  Country: VE (occurrence: VE)
  Receive Date: 20130528
  Receipt Date: 20130605
  Transmission Date: 20140414
  Serious: Yes (Hospitalization, Other)
  Sender: FDA-Public Use
  Company Number: PHHY2013VE052795

PATIENT
  Age: 77 Year
  Sex: Male

DRUGS (3)
  1. TASIGNA [Suspect]
     Indication: CHRONIC MYELOID LEUKAEMIA
     Dosage: 200 MG, Q12H
     Route: 048
     Dates: start: 2011, end: 20130521
  2. AMIKACIN [Concomitant]
  3. CARVEDILOL [Concomitant]

REACTIONS (3)
  - Pneumonia [Recovered/Resolved]
  - Leukaemia recurrent [Unknown]
  - Chronic myeloid leukaemia [Unknown]
